FAERS Safety Report 16727990 (Version 1)
Quarter: 2019Q3

REPORT INFORMATION
  Report Type: Report from Study
  Country: None (occurrence: DO)
  Receive Date: 20190822
  Receipt Date: 20190822
  Transmission Date: 20191005
  Serious: Yes (Other)
  Sender: FDA-Public Use
  Company Number: DO-ABBVIE-19K-279-2895655-00

PATIENT
  Age: 72 Year
  Sex: Female
  Weight: 59.02 kg

DRUGS (2)
  1. HUMIRA [Suspect]
     Active Substance: ADALIMUMAB
     Indication: RHEUMATOID ARTHRITIS
     Route: 058
     Dates: start: 20111207
  2. METHOTREXATO [Concomitant]
     Active Substance: METHOTREXATE
     Indication: RHEUMATOID ARTHRITIS
     Dosage: SATURDAY
     Route: 048
     Dates: start: 2007

REACTIONS (5)
  - Hip fracture [Not Recovered/Not Resolved]
  - Rheumatoid arthritis [Not Recovered/Not Resolved]
  - Laboratory test abnormal [Unknown]
  - Fracture pain [Not Recovered/Not Resolved]
  - Muscle rupture [Not Recovered/Not Resolved]

NARRATIVE: CASE EVENT DATE: 20181201
